FAERS Safety Report 10102107 (Version 1)
Quarter: 2014Q2

REPORT INFORMATION
  Report Type: Spontaneous
  Country: US (occurrence: None)
  Receive Date: 20140423
  Receipt Date: 20140423
  Transmission Date: 20141212
  Serious: Yes (Death)
  Sender: FDA-Public Use
  Company Number: None

PATIENT
  Age: 56 Year
  Sex: Female
  Weight: 83.92 kg

DRUGS (20)
  1. METHYPREDNISOLONE [Suspect]
     Indication: HEPATITIS ALCOHOLIC
     Route: 048
     Dates: start: 20140228, end: 20140327
  2. SODIUM CHLORIDE [Concomitant]
  3. PIPERACILLIN-TAZOBACTAM [Concomitant]
  4. CALCIUM GLUCONATE [Concomitant]
  5. PRISAMASOL [Concomitant]
  6. POTASSIUM CHLORIDE [Concomitant]
  7. MAGNESIUM SULFATE [Concomitant]
  8. SODIUM  PHOSPHATE [Concomitant]
  9. HEPARIN [Concomitant]
  10. VANCOMYCIN IN DEXTROSE [Concomitant]
  11. VANCOMYCIN ORAL SOLUTION [Concomitant]
  12. NOREPINEPHRINE [Concomitant]
  13. METRONIDAZOLE [Concomitant]
  14. ALBUTEROL (PROVENTIL) [Concomitant]
  15. IPRATROPIUM [Concomitant]
  16. LACTULOSE [Concomitant]
  17. TRAMADOL [Concomitant]
  18. PANTOPRAZOLE EC [Concomitant]
  19. METRONIDAZOLE [Concomitant]
  20. MOXIFLOXACIN [Concomitant]

REACTIONS (17)
  - Sepsis [None]
  - Mental status changes [None]
  - Fatigue [None]
  - Hypophagia [None]
  - Somnolence [None]
  - Confusional state [None]
  - Hepatic encephalopathy [None]
  - Asthenia [None]
  - Hypokalaemia [None]
  - Electrocardiogram abnormal [None]
  - Metabolic alkalosis [None]
  - Clostridium difficile infection [None]
  - Blood creatinine increased [None]
  - Hypoxia [None]
  - Enterococcal infection [None]
  - Blood pressure decreased [None]
  - Sudden death [None]
